FAERS Safety Report 7690617-3 (Version None)
Quarter: 2011Q3

REPORT INFORMATION
  Report Type: 
  Country: None (occurrence: None)
  Receive Date: 20110818
  Receipt Date: 20110803
  Transmission Date: 20111222
  Serious: No
  Sender: FDA-Public Use
  Company Number: US-B.I. PHARMACEUTICALS,INC./RIDGEFIELD-2011-BP-19117BP

PATIENT
  Sex: Female

DRUGS (7)
  1. COZAAR [Concomitant]
     Indication: HYPERTENSION
  2. CARDIZEM LA [Concomitant]
     Indication: HYPERTENSION
  3. AMBIEN [Concomitant]
     Indication: SLEEP DISORDER
  4. NORVASC [Concomitant]
     Indication: HYPERTENSION
  5. PRADAXA [Suspect]
     Indication: ATRIAL FIBRILLATION
     Dosage: 300 MG
     Route: 048
     Dates: start: 20110722
  6. CELEXA [Concomitant]
     Indication: DEPRESSION
  7. LASIX [Concomitant]
     Indication: FLUID RETENTION

REACTIONS (3)
  - CHEST PAIN [None]
  - CHEST DISCOMFORT [None]
  - DIZZINESS [None]
